FAERS Safety Report 5800217-5 (Version None)
Quarter: 2008Q3

REPORT INFORMATION
  Report Type: 
  Country: None (occurrence: None)
  Receive Date: 20080703
  Receipt Date: 20080620
  Transmission Date: 20090109
  Serious: Yes (Other)
  Sender: FDA-Public Use
  Company Number: JP-ELI_LILLY_AND_COMPANY-JP200712005036

PATIENT
  Age: 80 Year
  Sex: Male

DRUGS (2)
  1. GEMZAR [Suspect]
     Indication: PANCREATIC CARCINOMA
     Dosage: UNK, OTHER
     Route: 042
     Dates: start: 20070201
  2. TS 1 [Concomitant]
     Indication: PANCREATIC CARCINOMA
     Dosage: UNK, UNK
     Route: 048
     Dates: start: 20070201, end: 20070101

REACTIONS (6)
  - IRRITABILITY [None]
  - LACK OF SPONTANEOUS SPEECH [None]
  - LEUKOENCEPHALOPATHY [None]
  - PARKINSONIAN GAIT [None]
  - POLLAKIURIA [None]
  - RESTLESSNESS [None]
